FAERS Safety Report 9431544 (Version 2)
Quarter: 2013Q3

REPORT INFORMATION
  Report Type: Report from Study
  Country: RO (occurrence: RO)
  Receive Date: 20130731
  Receipt Date: 20130819
  Transmission Date: 20140515
  Serious: Yes (Death)
  Sender: FDA-Public Use
  Company Number: RO-ROCHE-1254447

PATIENT
  Sex: Male
  Weight: 60 kg

DRUGS (2)
  1. RITUXIMAB [Suspect]
     Indication: RHEUMATOID ARTHRITIS
     Dosage: CYCLE IN 24 WEEKS
     Route: 042
     Dates: start: 20110112, end: 20130727
  2. METOTREXAT [Concomitant]
     Indication: RHEUMATOID ARTHRITIS
     Dosage: WEEKLY
     Route: 048
     Dates: start: 20110101, end: 20130727

REACTIONS (1)
  - Lymphoma [Fatal]
